FAERS Safety Report 5502627-2 (Version None)
Quarter: 2007Q4

REPORT INFORMATION
  Report Type: 
  Country: None (occurrence: None)
  Receive Date: 20071031
  Receipt Date: 20071023
  Transmission Date: 20080405
  Serious: Yes (Other)
  Sender: FDA-Public Use
  Company Number: US-JNJFOC-20071006186

PATIENT
  Sex: Male
  Weight: 117.94 kg

DRUGS (12)
  1. FENTANYL TRANSDERMAL SYSTEM [Suspect]
     Route: 062
  2. FENTANYL TRANSDERMAL SYSTEM [Suspect]
     Route: 062
  3. FENTANYL TRANSDERMAL SYSTEM [Suspect]
     Indication: PAIN
     Route: 062
  4. PAXIL [Concomitant]
     Indication: DEPRESSION
     Route: 048
  5. PLAVIX [Concomitant]
     Indication: ANTICOAGULANT THERAPY
     Route: 048
  6. REQUIP [Concomitant]
     Indication: RESTLESS LEGS SYNDROME
     Route: 048
  7. KLONOPIN [Concomitant]
     Indication: TREMOR
     Route: 048
  8. LYRICA [Concomitant]
     Indication: NEURALGIA
     Route: 048
  9. DIOVAN [Concomitant]
     Indication: HYPERTENSION
     Route: 048
  10. ALTACE [Concomitant]
     Indication: HYPERTENSION
     Route: 048
  11. SPIRIVA [Concomitant]
     Indication: ASTHMA
     Route: 065
  12. XOPENEX [Concomitant]
     Indication: ASTHMA
     Route: 065

REACTIONS (4)
  - CEREBROVASCULAR ACCIDENT [None]
  - DIZZINESS [None]
  - DRUG EFFECT DECREASED [None]
  - OEDEMA PERIPHERAL [None]
